FAERS Safety Report 5733908-5 (Version None)
Quarter: 2008Q2

REPORT INFORMATION
  Report Type: 
  Country: None (occurrence: None)
  Receive Date: 20080509
  Receipt Date: 20080418
  Transmission Date: 20081010
  Serious: No
  Sender: FDA-Public Use
  Company Number: US-BOEHRINGER INGELHEIM GMBH, GERMANY-2008-BP-03286BP

PATIENT
  Sex: Male

DRUGS (7)
  1. SPIRIVA [Suspect]
     Indication: CHRONIC OBSTRUCTIVE PULMONARY DISEASE
     Route: 055
     Dates: start: 20060101
  2. PRO-AIR [Concomitant]
  3. NIACIN [Concomitant]
  4. ASPIRIN [Concomitant]
  5. SEROQUEL [Concomitant]
  6. INBEDA [Concomitant]
  7. AMBIEN [Concomitant]

REACTIONS (1)
  - DYSPNOEA [None]
